FAERS Safety Report 8191246-8 (Version None)
Quarter: 2012Q1

REPORT INFORMATION
  Report Type: 
  Country: None (occurrence: None)
  Receive Date: 20120307
  Receipt Date: 20120305
  Transmission Date: 20120608
  Serious: Yes (Life-Threatening, Hospitalization)
  Sender: FDA-Public Use
  Company Number: FR-GENZYME-CAMP-1002119

PATIENT
  Sex: Female
  Weight: 61 kg

DRUGS (4)
  1. CAMPATH [Suspect]
     Indication: CHRONIC LYMPHOCYTIC LEUKAEMIA
     Dosage: 30 MG, 3X PER CYCLE, DAY 1-3
     Route: 058
     Dates: start: 20080819, end: 20090109
  2. FLUDARA [Suspect]
     Indication: CHRONIC LYMPHOCYTIC LEUKAEMIA
     Dosage: 62 MG (40MG/M2), 3X PER CYCLE, DAY 1-3
     Route: 048
     Dates: start: 20080819, end: 20090109
  3. CYCLOPHOSPHAMIDE [Suspect]
     Indication: CHRONIC LYMPHOCYTIC LEUKAEMIA
     Dosage: 390 MG (250MG/M2), 3X PER CYCLE, DAY 1-3
     Route: 048
     Dates: start: 20080819, end: 20090109
  4. ANTIINFLAMMATORY [Concomitant]
     Indication: MUSCULOSKELETAL PAIN
     Dosage: UNK
     Route: 065

REACTIONS (2)
  - HERPES ZOSTER [None]
  - CHRONIC LYMPHOCYTIC LEUKAEMIA [None]
